FAERS Safety Report 18362096 (Version 2)
Quarter: 2020Q4

REPORT INFORMATION
  Report Type: Spontaneous
  Country: US (occurrence: US)
  Receive Date: 20201008
  Receipt Date: 20201014
  Transmission Date: 20210114
  Serious: Yes (Other)
  Sender: FDA-Public Use
  Company Number: US-PFIZER INC-2020385625

PATIENT
  Age: 38 Year
  Sex: Male

DRUGS (4)
  1. KETAMINE HCL [Suspect]
     Active Substance: KETAMINE HYDROCHLORIDE
     Indication: ANALGESIC THERAPY
     Dosage: 2.5 UG/KG/MIN
     Route: 041
  2. KETAMINE HCL [Suspect]
     Active Substance: KETAMINE HYDROCHLORIDE
     Dosage: 1.7 UG/KG/MIN
     Route: 041
  3. KETOROLAC [Concomitant]
     Active Substance: KETOROLAC TROMETHAMINE
     Dosage: 30 MG, AS NEEDED (INTERMITTENTLY)
     Route: 042
  4. ACETAMINOPHEN. [Concomitant]
     Active Substance: ACETAMINOPHEN
     Dosage: 1 G EVERY 6 HOURS
     Route: 042

REACTIONS (3)
  - Atelectasis [Unknown]
  - Mental status changes [Unknown]
  - Somnolence [Unknown]
